FAERS Safety Report 24582098 (Version 1)
Quarter: 2024Q4

REPORT INFORMATION
  Report Type: Spontaneous
  Country: US (occurrence: US)
  Receive Date: 20241105
  Receipt Date: 20241105
  Transmission Date: 20250115
  Serious: Yes (Other)
  Sender: JOHNSON AND JOHNSON
  Company Number: US-VIIV HEALTHCARE-US2024AMR135332

PATIENT
  Sex: Male

DRUGS (2)
  1. RILPIVIRINE [Suspect]
     Active Substance: RILPIVIRINE
     Indication: HIV infection
     Dosage: UNK UNK, MO CABOTEGRAVIR 400 MG (2 ML) AND RILPIVIRINE 600 MG (2ML)
     Route: 030
  2. CABOTEGRAVIR [Suspect]
     Active Substance: CABOTEGRAVIR
     Indication: HIV infection
     Dosage: UNK UNK, MO CABOTEGRAVIR 400 MG (2 ML) AND RILPIVIRINE 600 MG (2ML)
     Route: 030

REACTIONS (2)
  - Brain injury [Unknown]
  - Injection site pain [Recovering/Resolving]
